FAERS Safety Report 4679327-4 (Version None)
Quarter: 2005Q2

REPORT INFORMATION
  Report Type: 
  Country: None (occurrence: None)
  Receive Date: 20050531
  Receipt Date: 20050511
  Transmission Date: 20051028
  Serious: Yes (Hospitalization)
  Sender: FDA-Public Use
  Company Number: 2005SP000671

PATIENT
  Age: 42 Year
  Sex: Female
  Weight: 108.8633 kg

DRUGS (8)
  1. LUNESTA [Suspect]
     Indication: INSOMNIA
     Dosage: 3 MG; HS; ORAL
     Route: 048
     Dates: start: 20050502, end: 20050511
  2. NEURONTIN [Concomitant]
  3. KLONOPIN [Concomitant]
  4. GEODON [Concomitant]
  5. DARVOCET-N 100 [Concomitant]
  6. FLEXERIL [Concomitant]
  7. CYMBALTA [Concomitant]
  8. MOBIC [Concomitant]

REACTIONS (10)
  - DIFFICULTY IN WALKING [None]
  - DYSPNOEA [None]
  - GAIT DISTURBANCE [None]
  - HAEMATOCRIT DECREASED [None]
  - HEADACHE [None]
  - HEART RATE INCREASED [None]
  - HYPOGLYCAEMIA [None]
  - ORTHOSTATIC HYPOTENSION [None]
  - SYNCOPE [None]
  - VERTIGO [None]
